FAERS Safety Report 7677787-8 (Version None)
Quarter: 2011Q3

REPORT INFORMATION
  Report Type: 
  Country: None (occurrence: None)
  Receive Date: 20110811
  Receipt Date: 20110808
  Transmission Date: 20111222
  Serious: Yes (Other)
  Sender: FDA-Public Use
  Company Number: US-BAYER-2011-015942

PATIENT
  Age: 22 Year
  Sex: Female
  Weight: 66 kg

DRUGS (1)
  1. MIRENA [Suspect]
     Indication: CONTRACEPTION
     Dosage: CONTINUOUSLY 20 ?G/D
     Route: 015
     Dates: start: 20101001, end: 20110401

REACTIONS (9)
  - URINARY TRACT INFECTION [None]
  - HOT FLUSH [None]
  - INSOMNIA [None]
  - WEIGHT INCREASED [None]
  - NIGHT SWEATS [None]
  - HEADACHE [None]
  - MUSCLE SPASMS [None]
  - DEPRESSION [None]
  - FATIGUE [None]
